FAERS Safety Report 9173387 (Version 1)
Quarter: 2013Q1

REPORT INFORMATION
  Report Type: Spontaneous
  Country: US (occurrence: None)
  Receive Date: 20130318
  Receipt Date: 20130318
  Transmission Date: 20140127
  Serious: Yes (Hospitalization)
  Sender: FDA-Public Use
  Company Number: None

PATIENT
  Age: 53 Year
  Sex: Male
  Weight: 119.75 kg

DRUGS (2)
  1. PRILOSEC [Suspect]
     Indication: ULCER
     Dosage: ONCE A DAY
     Dates: start: 20100216, end: 20130314
  2. PRILOSEC [Suspect]
     Indication: GASTROOESOPHAGEAL REFLUX DISEASE
     Dosage: ONCE A DAY
     Dates: start: 20100216, end: 20130314

REACTIONS (1)
  - Foot fracture [None]
